FAERS Safety Report 6164591-5 (Version None)
Quarter: 2009Q2

REPORT INFORMATION
  Report Type: 
  Country: None (occurrence: None)
  Receive Date: 20090423
  Receipt Date: 20090414
  Transmission Date: 20091009
  Serious: Yes (Hospitalization)
  Sender: FDA-Public Use
  Company Number: US-ELI_LILLY_AND_COMPANY-US200902004489

PATIENT
  Age: 45 Year
  Sex: Female
  Weight: 99.773 kg

DRUGS (5)
  1. BYETTA [Suspect]
     Indication: DIABETES MELLITUS
     Dosage: 5 UG, 2/D
     Dates: start: 20080312, end: 20080928
  2. ADVAIR HFA [Concomitant]
  3. LEXAPRO [Concomitant]
  4. ASPIRIN [Concomitant]
  5. PRILOSEC [Concomitant]

REACTIONS (7)
  - BLOOD AMYLASE INCREASED [None]
  - DIZZINESS [None]
  - HYPERHIDROSIS [None]
  - LIPASE INCREASED [None]
  - NAUSEA [None]
  - PANCREATITIS [None]
  - TREMOR [None]
